FAERS Safety Report 8533500-3 (Version None)
Quarter: 2012Q3

REPORT INFORMATION
  Report Type: 
  Country: None (occurrence: None)
  Receive Date: 20120724
  Receipt Date: 20120709
  Transmission Date: 20120928
  Serious: Yes (Hospitalization, Other)
  Sender: FDA-Public Use
  Company Number: ZA-ELI_LILLY_AND_COMPANY-ZA201207006816

PATIENT
  Sex: Male

DRUGS (2)
  1. LANTUS [Concomitant]
     Indication: DIABETES MELLITUS
     Dosage: 10 U, EACH EVENING
     Route: 058
  2. HUMALOG [Suspect]
     Indication: DIABETES MELLITUS
     Dosage: 10 U, TID
     Route: 058
     Dates: start: 20120301

REACTIONS (2)
  - MALAISE [None]
  - RENAL FAILURE [None]
